FAERS Safety Report 7536149-4 (Version None)
Quarter: 2011Q2

REPORT INFORMATION
  Report Type: 
  Country: None (occurrence: None)
  Receive Date: 20110609
  Receipt Date: 20110527
  Transmission Date: 20111010
  Serious: Yes (Hospitalization, Other)
  Sender: FDA-Public Use
  Company Number: US-ELI_LILLY_AND_COMPANY-US201105008517

PATIENT
  Sex: Female

DRUGS (8)
  1. ASPIRIN [Concomitant]
     Dosage: UNK
     Route: 065
  2. MULTI-VITAMIN [Concomitant]
     Dosage: UNK
     Route: 065
  3. HYDROCHLOROTHIAZIDE [Concomitant]
     Dosage: UNK
     Route: 065
  4. FORTEO [Suspect]
     Indication: OSTEOPOROSIS
     Dosage: 20 UG, QD
     Route: 065
     Dates: start: 20090101, end: 20110516
  5. VITAMIN B-12 [Concomitant]
     Dosage: UNK
     Route: 065
  6. INSULIN [Concomitant]
     Dosage: UNK
     Route: 065
  7. SIMVASTATIN [Concomitant]
     Dosage: UNK
     Route: 065
  8. VITAMIN D [Concomitant]
     Dosage: UNK
     Route: 065

REACTIONS (2)
  - PELVIC HAEMORRHAGE [None]
  - NEOPLASM MALIGNANT [None]
